FAERS Safety Report 6640240-4 (Version None)
Quarter: 2010Q1

REPORT INFORMATION
  Report Type: 
  Country: None (occurrence: None)
  Receive Date: 20100302
  Receipt Date: 20091214
  Transmission Date: 20100710
  Serious: No
  Sender: FDA-Public Use
  Company Number: MC200900432

PATIENT
  Sex: Male

DRUGS (2)
  1. CLEVIPREX [Suspect]
     Indication: BLOOD PRESSURE MANAGEMENT
     Dosage: INTRAVENOUS; , 4 MG/HR, IV
     Route: 042
     Dates: end: 20091214
  2. CLEVIPREX [Suspect]
     Indication: BLOOD PRESSURE MANAGEMENT
     Dosage: INTRAVENOUS; , 4 MG/HR, IV
     Route: 042
     Dates: start: 20091213

REACTIONS (3)
  - INFUSION SITE EXTRAVASATION [None]
  - INFUSION SITE SWELLING [None]
  - PERIPHERAL COLDNESS [None]
